FAERS Safety Report 5443253-3 (Version None)
Quarter: 2007Q3

REPORT INFORMATION
  Report Type: 
  Country: None (occurrence: None)
  Receive Date: 20070830
  Receipt Date: 20070815
  Transmission Date: 20080115
  Serious: Yes (Other)
  Sender: FDA-Public Use
  Company Number: ENTC2007-0239

PATIENT
  Age: 67 Year
  Sex: Male

DRUGS (1)
  1. STALEVO 100 [Suspect]
     Indication: PARKINSON'S DISEASE
     Dosage: 1/2 TABLET EVERY 3HOURS ORAL
     Route: 048

REACTIONS (11)
  - CONDITION AGGRAVATED [None]
  - GAIT DISTURBANCE [None]
  - INDURATION [None]
  - MUSCLE DISORDER [None]
  - PARKINSON'S DISEASE [None]
  - POLLAKIURIA [None]
  - SLEEP DISORDER [None]
  - SPEECH DISORDER [None]
  - THERAPEUTIC RESPONSE DECREASED [None]
  - VOMITING [None]
  - WEIGHT DECREASED [None]
